FAERS Safety Report 8100404-X (Version None)
Quarter: 2012Q1

REPORT INFORMATION
  Report Type: 
  Country: None (occurrence: None)
  Receive Date: 20120129
  Receipt Date: 20111116
  Transmission Date: 20120608
  Serious: No
  Sender: FDA-Public Use
  Company Number: US-ABBOTT-11P-163-0874900-00

PATIENT
  Sex: Female
  Weight: 71.732 kg

DRUGS (7)
  1. METHOTREXATE [Concomitant]
     Indication: RHEUMATOID ARTHRITIS
  2. DARVOCET [Concomitant]
     Indication: RHEUMATOID ARTHRITIS
  3. AMITIZA [Concomitant]
     Indication: IRRITABLE BOWEL SYNDROME
  4. HUMIRA [Suspect]
     Dates: start: 20110101
  5. FOLIC ACID [Concomitant]
     Indication: VITAMIN SUPPLEMENTATION
  6. RELPAX [Concomitant]
     Indication: MIGRAINE
  7. HUMIRA [Suspect]
     Indication: RHEUMATOID ARTHRITIS
     Dates: start: 20080301, end: 20110101

REACTIONS (7)
  - OCULAR HYPERAEMIA [None]
  - EYE INFLAMMATION [None]
  - VISION BLURRED [None]
  - EYE PAIN [None]
  - EYE SWELLING [None]
  - SENSORY DISTURBANCE [None]
  - ARTHRITIS [None]
